FAERS Safety Report 9305720 (Version 1)
Quarter: 2013Q2

REPORT INFORMATION
  Report Type: Spontaneous
  Country: CA (occurrence: CA)
  Receive Date: 20130523
  Receipt Date: 20130523
  Transmission Date: 20140414
  Serious: Yes (Other)
  Sender: FDA-Public Use
  Company Number: CA-ELI_LILLY_AND_COMPANY-CA201305004057

PATIENT
  Age: 54 Year
  Sex: Female

DRUGS (5)
  1. FORTEO [Suspect]
     Indication: OSTEOPOROSIS
     Dosage: 20 UG, QD
     Route: 058
     Dates: start: 20110827
  2. SYMBICORT [Concomitant]
  3. VENTOLIN                                /SCH/ [Concomitant]
  4. VITAMIN D NOS [Concomitant]
  5. CALCIUM [Concomitant]

REACTIONS (6)
  - Concussion [Recovering/Resolving]
  - Road traffic accident [Recovered/Resolved]
  - Foot fracture [Not Recovered/Not Resolved]
  - Thinking abnormal [Not Recovered/Not Resolved]
  - Motion sickness [Not Recovered/Not Resolved]
  - Headache [Not Recovered/Not Resolved]
